FAERS Safety Report 25834089 (Version 1)
Quarter: 2025Q3

REPORT INFORMATION
  Report Type: Spontaneous
  Country: EU (occurrence: EU)
  Receive Date: 20250923
  Receipt Date: 20250923
  Transmission Date: 20251021
  Serious: Yes (Disabling)
  Sender: BAUSCH AND LOMB
  Company Number: EU-BAUSCH-BH-2025-017692

PATIENT
  Age: 23 Year
  Sex: Female
  Weight: 59.0 kg

DRUGS (1)
  1. ELIDEL [Suspect]
     Active Substance: PIMECROLIMUS
     Indication: Hand dermatitis
     Dosage: APPLIED THINLY TWICE DAILY TO ECZEMA PATCHES ON HANDS
     Route: 003
     Dates: start: 20250829, end: 20250901

REACTIONS (4)
  - Eczema [Recovering/Resolving]
  - Peripheral swelling [Recovering/Resolving]
  - Erythema [Recovering/Resolving]
  - Pain in extremity [Recovering/Resolving]
